FAERS Safety Report 6307598-7 (Version None)
Quarter: 2009Q3

REPORT INFORMATION
  Report Type: 
  Country: None (occurrence: None)
  Receive Date: 20090811
  Receipt Date: 20090804
  Transmission Date: 20100115
  Serious: Yes (Congenital Anomaly)
  Sender: FDA-Public Use
  Company Number: SPV1-2009-01592

PATIENT

DRUGS (3)
  1. PENTASA [Suspect]
  2. IMURAN [Suspect]
     Indication: CROHN'S DISEASE
     Dosage: 150 MG, 1X/DAY:QD, ORAL
     Route: 048
     Dates: start: 20060215
  3. BUDESONIDE [Suspect]

REACTIONS (2)
  - HEART DISEASE CONGENITAL [None]
  - MATERNAL DRUGS AFFECTING FOETUS [None]
